FAERS Safety Report 7209175-2 (Version None)
Quarter: 2011Q1

REPORT INFORMATION
  Report Type: 
  Country: None (occurrence: None)
  Receive Date: 20110104
  Receipt Date: 20101228
  Transmission Date: 20110831
  Serious: Yes (Hospitalization, Other)
  Sender: FDA-Public Use
  Company Number: US-AMGEN-USASP2010003818

PATIENT

DRUGS (18)
  1. LISINOPRIL [Concomitant]
  2. METHOTREXATE [Concomitant]
  3. ENBREL [Suspect]
     Indication: RHEUMATOID ARTHRITIS
     Dates: start: 20021201, end: 20100301
  4. FOLIC ACID [Concomitant]
  5. SYNTHROID [Concomitant]
  6. RANITIDINE [Concomitant]
  7. INDOCIN                            /00003801/ [Concomitant]
  8. HYTRIN [Concomitant]
  9. CELEBREX [Concomitant]
  10. TYLENOL (CAPLET) [Concomitant]
  11. OMEGA 3                            /00931501/ [Concomitant]
  12. HYDROCHLOROTHIAZIDE [Concomitant]
  13. VITAMINS                           /00067501/ [Concomitant]
  14. VIOXX [Concomitant]
  15. FELDENE [Concomitant]
  16. OMEPRAZOLE [Concomitant]
  17. FLOMAX [Concomitant]
  18. OXYCODONE [Concomitant]
     Dosage: UNK UNK, TID

REACTIONS (26)
  - FEBRILE NEUTROPENIA [None]
  - FOOT DEFORMITY [None]
  - JOINT DISLOCATION [None]
  - JOINT STIFFNESS [None]
  - SCIATICA [None]
  - MUSCULOSKELETAL STIFFNESS [None]
  - HAND DEFORMITY [None]
  - PAIN IN EXTREMITY [None]
  - BURNING SENSATION [None]
  - POST PROCEDURAL INFECTION [None]
  - ARTHRALGIA [None]
  - OSTEOPENIA [None]
  - SYNOVITIS [None]
  - URINARY CYSTECTOMY [None]
  - SMALL INTESTINAL OBSTRUCTION [None]
  - VITAMIN D DEFICIENCY [None]
  - RHEUMATOID ARTHRITIS [None]
  - PROCTALGIA [None]
  - HAEMATURIA [None]
  - BACK PAIN [None]
  - PROSTATECTOMY [None]
  - BLADDER CANCER [None]
  - INTESTINAL MASS [None]
  - JOINT SWELLING [None]
  - OEDEMA PERIPHERAL [None]
  - INFECTED LYMPHOCELE [None]
